FAERS Safety Report 9852424 (Version 1)
Quarter: 2014Q1

REPORT INFORMATION
  Report Type: Spontaneous
  Country: US (occurrence: US)
  Receive Date: 20140129
  Receipt Date: 20140129
  Transmission Date: 20141002
  Serious: Yes (Hospitalization)
  Sender: FDA-Public Use
  Company Number: US-SA-2014SA011018

PATIENT
  Age: 68 Year
  Sex: Male

DRUGS (2)
  1. LANTUS SOLOSTAR [Suspect]
     Dosage: TAKEN FROM: OVER 5 YEARS DOSE:200 UNIT(S)
     Route: 058
  2. SOLOSTAR [Concomitant]

REACTIONS (2)
  - Cardiac failure congestive [Unknown]
  - Pseudomonas infection [Unknown]
